FAERS Safety Report 19740706 (Version 1)
Quarter: 2021Q3

REPORT INFORMATION
  Report Type: Spontaneous
  Country: IL (occurrence: IL)
  Receive Date: 20210824
  Receipt Date: 20210824
  Transmission Date: 20211014
  Serious: Yes (Hospitalization, Other)
  Sender: FDA-Public Use
  Company Number: IL-B.I. PHARMACEUTICALS,INC./RIDGEFIELD-2021-BI-122819

PATIENT
  Age: 61 Year
  Sex: Male

DRUGS (1)
  1. JARDIANCE [Suspect]
     Active Substance: EMPAGLIFLOZIN
     Indication: TYPE 2 DIABETES MELLITUS
     Dates: start: 2018

REACTIONS (6)
  - Nausea [Unknown]
  - Diabetic ketoacidosis [Recovered/Resolved]
  - Asthenia [Unknown]
  - Fatigue [Unknown]
  - Ear pain [Unknown]
  - Abdominal pain upper [Unknown]
